FAERS Safety Report 11467338 (Version 3)
Quarter: 2015Q3

REPORT INFORMATION
  Report Type: Spontaneous
  Country: MY (occurrence: MY)
  Receive Date: 20150908
  Receipt Date: 20150929
  Transmission Date: 20151125
  Serious: Yes (Death, Other)
  Sender: FDA-Public Use
  Company Number: MY-HOSPIRA-2996547

PATIENT
  Age: 67 Year
  Sex: Female
  Weight: 60 kg

DRUGS (3)
  1. LEVOPHED [Suspect]
     Active Substance: NOREPINEPHRINE BITARTRATE
     Indication: SEPTIC SHOCK
     Dosage: 8 ML/HR
     Route: 042
     Dates: start: 20150822
  2. PROPOFOL. [Concomitant]
     Active Substance: PROPOFOL
     Indication: PRODUCT USED FOR UNKNOWN INDICATION
     Dosage: 2 ML/HR
     Route: 042
     Dates: start: 20150822
  3. DOPAMINE HYDROCHLORIDE. [Concomitant]
     Active Substance: DOPAMINE HYDROCHLORIDE
     Indication: SEPSIS
     Dosage: 4 MG/ HR
     Route: 042
     Dates: start: 20150822

REACTIONS (3)
  - Anuria [Unknown]
  - Acute respiratory distress syndrome [Fatal]
  - Hypoperfusion [Fatal]
